FAERS Safety Report 5259942-X (Version None)
Quarter: 2007Q1

REPORT INFORMATION
  Report Type: 
  Country: None (occurrence: None)
  Receive Date: 20070309
  Receipt Date: 20070302
  Transmission Date: 20070707
  Serious: Yes (Death, Hospitalization)
  Sender: FDA-Public Use
  Company Number: JP-GLAXOSMITHKLINE-B0457453A

PATIENT
  Age: 45 Year
  Sex: Female

DRUGS (7)
  1. MELPHALAN [Suspect]
     Indication: CASTLEMAN'S DISEASE
     Dosage: 10MG CYCLIC
     Route: 048
     Dates: start: 20020207, end: 20030818
  2. PREDNISOLONE [Concomitant]
     Indication: CASTLEMAN'S DISEASE
     Route: 048
     Dates: start: 20011001, end: 20030818
  3. GASTER D [Concomitant]
     Indication: GASTRITIS
     Dosage: 20MG PER DAY
     Route: 048
     Dates: start: 20011001
  4. ISCOTIN [Concomitant]
     Indication: ANTIBIOTIC PROPHYLAXIS
     Dosage: .6G PER DAY
     Route: 048
     Dates: start: 20011001
  5. BAKTAR [Concomitant]
     Indication: ANTIFUNGAL PROPHYLAXIS
     Route: 048
     Dates: start: 20020109
  6. FUROSEMIDE [Concomitant]
     Dosage: 20MG PER DAY
     Route: 048
     Dates: start: 20020221, end: 20020729
  7. FERROMIA [Concomitant]
     Dosage: 50MG PER DAY
     Route: 048
     Dates: start: 20020221, end: 20020925

REACTIONS (5)
  - ANGIOPATHY [None]
  - CHRONIC MYELOMONOCYTIC LEUKAEMIA [None]
  - CYTOMEGALOVIRUS ENTEROCOLITIS [None]
  - LEUKOCYTOSIS [None]
  - THROMBOSIS [None]
